FAERS Safety Report 9461342 (Version 1)
Quarter: 2013Q3

REPORT INFORMATION
  Report Type: Spontaneous
  Country: US (occurrence: None)
  Receive Date: 20130814
  Receipt Date: 20130814
  Transmission Date: 20140515
  Serious: Yes (Other)
  Sender: FDA-Public Use
  Company Number: None

PATIENT
  Age: 70 Year
  Sex: Male
  Weight: 85.73 kg

DRUGS (1)
  1. WELCHOL [Suspect]
     Indication: BLOOD CHOLESTEROL INCREASED
     Dosage: 625 MG 1 PILL 3 PILLS TWICE DAILY MOUTH W MEALS + WATER
     Route: 048
     Dates: start: 20130707, end: 20130802

REACTIONS (1)
  - Dyspepsia [None]
